FAERS Safety Report 10174724 (Version 1)
Quarter: 2014Q2

REPORT INFORMATION
  Report Type: Spontaneous
  Country: DK (occurrence: DK)
  Receive Date: 20140515
  Receipt Date: 20140515
  Transmission Date: 20141212
  Serious: Yes (Life-Threatening)
  Sender: FDA-Public Use
  Company Number: DK-ACTAVIS-2014-09697

PATIENT
  Age: 65 Year
  Sex: Male

DRUGS (4)
  1. INDAPAMID ACTAVIS [Suspect]
     Indication: HYPERTENSION
     Dosage: 1.5 MG, DAILY
     Route: 048
     Dates: start: 20120813, end: 20140128
  2. METFORMIN ACTAVIS [Concomitant]
     Indication: DIABETES MELLITUS
     Dosage: UNK
     Route: 065
     Dates: start: 20120503
  3. ALLOPURINOL [Concomitant]
     Indication: PRODUCT USED FOR UNKNOWN INDICATION
     Dosage: UNK
     Route: 065
     Dates: start: 20120303
  4. SIMVASTATIN [Concomitant]
     Indication: PRODUCT USED FOR UNKNOWN INDICATION
     Dosage: UNK
     Route: 065
     Dates: start: 20120513, end: 20140128

REACTIONS (2)
  - Rhabdomyolysis [Recovering/Resolving]
  - Hypokalaemia [Recovering/Resolving]
